FAERS Safety Report 16332316 (Version 1)
Quarter: 2019Q2

REPORT INFORMATION
  Report Type: Report from Study
  Country: DE (occurrence: DE)
  Receive Date: 20190520
  Receipt Date: 20190520
  Transmission Date: 20190711
  Serious: No
  Sender: FDA-Public Use
  Company Number: DE-ROCHE-2321209

PATIENT
  Age: 38 Year
  Sex: Female
  Weight: 68 kg

DRUGS (5)
  1. DEKRISTOL [Concomitant]
     Active Substance: CHOLECALCIFEROL
     Indication: VITAMIN D DEFICIENCY
     Dosage: ONGOING
     Route: 048
     Dates: start: 20160906
  2. OCRELIZUMAB. [Suspect]
     Active Substance: OCRELIZUMAB
     Indication: MULTIPLE SCLEROSIS
     Route: 042
     Dates: start: 20180503, end: 20180517
  3. PREDNISOLUT [PREDNISOLONE HEMISUCCINATE] [Concomitant]
     Indication: PROPHYLAXIS
     Route: 042
     Dates: start: 20180503, end: 20180503
  4. AERIUS (DESLORATADINE) [Concomitant]
     Active Substance: DESLORATADINE
     Indication: PROPHYLAXIS
     Route: 065
     Dates: start: 20180502, end: 20180504
  5. RANITIDINE. [Concomitant]
     Active Substance: RANITIDINE
     Indication: PROPHYLAXIS
     Route: 048
     Dates: start: 20180502, end: 20180504

REACTIONS (1)
  - Respiratory tract infection [Recovered/Resolved]

NARRATIVE: CASE EVENT DATE: 20190115
